FAERS Safety Report 4630123-3 (Version None)
Quarter: 2005Q2

REPORT INFORMATION
  Report Type: 
  Country: None (occurrence: None)
  Receive Date: 20050408
  Receipt Date: 20050324
  Transmission Date: 20051028
  Serious: Yes (Hospitalization)
  Sender: FDA-Public Use
  Company Number: JP-GLAXOSMITHKLINE-B0375961A

PATIENT
  Age: 29 Year
  Sex: Female
  Weight: 54 kg

DRUGS (10)
  1. PAXIL [Suspect]
     Indication: DEPRESSION
     Dosage: 20MG PER DAY
     Route: 048
     Dates: start: 20040723, end: 20050319
  2. DESYREL [Suspect]
     Indication: INSOMNIA
     Dosage: 25MG PER DAY
     Route: 048
     Dates: start: 20040911, end: 20050310
  3. HUSCODE [Suspect]
     Indication: COUGH
     Dosage: 3.33ML THREE TIMES PER DAY
     Route: 048
     Dates: start: 20050304, end: 20050305
  4. HOKUNALIN [Suspect]
     Indication: COUGH
     Dosage: .5MG THREE TIMES PER DAY
     Route: 048
     Dates: start: 20050304, end: 20050305
  5. ZITHROMAC [Suspect]
     Indication: COUGH
     Dosage: 250MG TWICE PER DAY
     Route: 048
     Dates: start: 20050304, end: 20050305
  6. DEPAKENE [Suspect]
     Indication: AFFECT LABILITY
     Dosage: 200MG TWICE PER DAY
     Route: 048
     Dates: start: 20050212, end: 20050317
  7. SEROQUEL [Suspect]
     Indication: AFFECT LABILITY
     Route: 048
     Dates: start: 20040101
  8. BAKUMONDO-TO [Concomitant]
     Indication: DYSMENORRHOEA
     Route: 048
     Dates: start: 20050304
  9. SHIMOTSU-TO [Concomitant]
     Indication: DYSMENORRHOEA
     Route: 048
     Dates: start: 20050304
  10. MOBIC [Concomitant]
     Dates: start: 20040821, end: 20040910

REACTIONS (13)
  - BLOOD CREATINE PHOSPHOKINASE INCREASED [None]
  - DELUSION [None]
  - EXTRAPYRAMIDAL DISORDER [None]
  - GAIT DISTURBANCE [None]
  - HALLUCINATION, AUDITORY [None]
  - HEADACHE [None]
  - MOOD SWINGS [None]
  - MUSCLE RIGIDITY [None]
  - OVERDOSE [None]
  - PANIC REACTION [None]
  - SUICIDAL IDEATION [None]
  - SUICIDE ATTEMPT [None]
  - TREMOR [None]
